FAERS Safety Report 10162180 (Version 1)
Quarter: 2014Q2

REPORT INFORMATION
  Report Type: Spontaneous
  Country: US (occurrence: None)
  Receive Date: 20140508
  Receipt Date: 20140508
  Transmission Date: 20141212
  Serious: Yes (Other)
  Sender: FDA-Public Use
  Company Number: None

PATIENT
  Age: 60 Year
  Sex: Female

DRUGS (3)
  1. SOVALDI [Suspect]
     Indication: HEPATITIS C
     Route: 048
     Dates: start: 20140404
  2. RIBAPAK [Suspect]
     Indication: HEPATITIS C
     Dosage: 600MG QAM + QPM ORAL?
     Route: 048
     Dates: start: 20140404
  3. PEGASYS [Concomitant]

REACTIONS (1)
  - White blood cell count decreased [None]
